FAERS Safety Report 5883604-9 (Version None)
Quarter: 2008Q3

REPORT INFORMATION
  Report Type: 
  Country: None (occurrence: None)
  Receive Date: 20080915
  Receipt Date: 20080908
  Transmission Date: 20090109
  Serious: Yes (Hospitalization)
  Sender: FDA-Public Use
  Company Number: PHHY2008SE20522

PATIENT
  Sex: Male

DRUGS (5)
  1. VOLTAREN [Suspect]
     Indication: SCIATICA
     Dosage: 75 MG /DAY
     Dates: end: 20080619
  2. VOLTAREN [Suspect]
     Dosage: UNK
     Dates: end: 20080619
  3. METOPROLOL TARTRATE [Concomitant]
     Route: 048
  4. FELODIPINE [Concomitant]
  5. ASPIRIN [Concomitant]
     Route: 048

REACTIONS (5)
  - BLOOD CREATININE INCREASED [None]
  - HAEMOGLOBIN DECREASED [None]
  - HYPERCALCAEMIA [None]
  - NEPHROGENIC ANAEMIA [None]
  - OSTEOPENIA [None]
